FAERS Safety Report 9265314 (Version 2)
Quarter: 2013Q2

REPORT INFORMATION
  Report Type: Spontaneous
  Country: US (occurrence: US)
  Receive Date: 20130501
  Receipt Date: 20130505
  Transmission Date: 20140414
  Serious: Yes (Hospitalization)
  Sender: FDA-Public Use
  Company Number: US-B.I. PHARMACEUTICALS,INC./RIDGEFIELD-2013-BI-11065BP

PATIENT
  Age: 56 Year
  Sex: Male

DRUGS (5)
  1. TRADJENTA [Suspect]
     Indication: TYPE 2 DIABETES MELLITUS
     Dosage: 5 MG
     Route: 048
     Dates: start: 20120705, end: 20130415
  2. COZAAR [Suspect]
     Dates: start: 201304
  3. LANTUS [Concomitant]
     Route: 058
  4. AMARYL [Concomitant]
  5. PREDNISONE [Concomitant]

REACTIONS (4)
  - Pancreatitis [Unknown]
  - Respiratory failure [Unknown]
  - Blood glucose increased [Unknown]
  - Blood triglycerides increased [Unknown]
